FAERS Safety Report 19952005 (Version 3)
Quarter: 2021Q4

REPORT INFORMATION
  Report Type: Spontaneous
  Country: US (occurrence: US)
  Receive Date: 20211013
  Receipt Date: 20211109
  Transmission Date: 20220303
  Serious: Yes (Hospitalization)
  Sender: FDA-Public Use
  Company Number: US-NABRIVA THERAPEUTICS IRELAND DAC-US-2021NAB000013

PATIENT
  Age: 56 Year
  Sex: Male

DRUGS (1)
  1. XENLETA [Suspect]
     Active Substance: LEFAMULIN ACETATE
     Dosage: 600 MILLIGRAM, BID
     Route: 048

REACTIONS (2)
  - Pneumonia [Recovering/Resolving]
  - Drug ineffective [Unknown]

NARRATIVE: CASE EVENT DATE: 20210101
